FAERS Safety Report 15340371 (Version 2)
Quarter: 2018Q3

REPORT INFORMATION
  Report Type: Spontaneous
  Country: US (occurrence: US)
  Receive Date: 20180831
  Receipt Date: 20180912
  Transmission Date: 20181010
  Serious: Yes (Other)
  Sender: FDA-Public Use
  Company Number: US-NOVOPROD-618270

PATIENT
  Sex: Male

DRUGS (1)
  1. NOVOLOG MIX 70/30 [Suspect]
     Active Substance: INSULIN ASPART
     Indication: PRODUCT USED FOR UNKNOWN INDICATION
     Dosage: UNK
     Route: 058

REACTIONS (11)
  - Dizziness [Unknown]
  - Hypertension [Unknown]
  - Dyspnoea [Unknown]
  - Stress [Unknown]
  - Blood glucose increased [Unknown]
  - Cerebrovascular accident [Unknown]
  - Hypoacusis [Unknown]
  - Renal failure [Unknown]
  - Visual impairment [Unknown]
  - Glaucoma [Unknown]
  - Intentional dose omission [Unknown]

NARRATIVE: CASE EVENT DATE: 201804
